FAERS Safety Report 21438914 (Version 4)
Quarter: 2022Q4

REPORT INFORMATION
  Report Type: Spontaneous
  Country: JP (occurrence: JP)
  Receive Date: 20221011
  Receipt Date: 20221213
  Transmission Date: 20230113
  Serious: Yes (Hospitalization, Other)
  Sender: FDA-Public Use
  Company Number: JP-ONO-2021JP032758

PATIENT
  Age: 71 Year
  Sex: Female
  Weight: 46.5 kg

DRUGS (53)
  1. OPDIVO [Suspect]
     Active Substance: NIVOLUMAB
     Indication: Non-small cell lung cancer recurrent
     Dosage: 360 MG
     Route: 041
  2. OPDIVO [Suspect]
     Active Substance: NIVOLUMAB
     Dates: start: 20210824
  3. OPDIVO [Suspect]
     Active Substance: NIVOLUMAB
     Dates: start: 20210915
  4. OPDIVO [Suspect]
     Active Substance: NIVOLUMAB
     Dates: start: 20211005
  5. OPDIVO [Suspect]
     Active Substance: NIVOLUMAB
     Dates: start: 20211027
  6. YERVOY [Suspect]
     Active Substance: IPILIMUMAB
     Indication: Non-small cell lung cancer recurrent
     Dosage: 50 MG
     Route: 042
  7. YERVOY [Suspect]
     Active Substance: IPILIMUMAB
     Route: 042
     Dates: start: 20210915
  8. YERVOY [Suspect]
     Active Substance: IPILIMUMAB
     Route: 042
     Dates: start: 20211027
  9. PARAPLATIN [Suspect]
     Active Substance: CARBOPLATIN
     Indication: Non-small cell lung cancer recurrent
     Dosage: 530 MG
     Dates: end: 20210824
  10. PARAPLATIN [Suspect]
     Active Substance: CARBOPLATIN
     Dates: start: 20211215, end: 20211215
  11. PARAPLATIN [Suspect]
     Active Substance: CARBOPLATIN
     Dates: start: 20220118, end: 20220118
  12. ALIMTA [Suspect]
     Active Substance: PEMETREXED DISODIUM
     Indication: Non-small cell lung cancer recurrent
     Dosage: 715 MG
     Route: 041
     Dates: end: 20210824
  13. ALIMTA [Suspect]
     Active Substance: PEMETREXED DISODIUM
     Route: 041
     Dates: start: 20220118, end: 20220118
  14. ALIMTA [Suspect]
     Active Substance: PEMETREXED DISODIUM
     Route: 041
     Dates: start: 20220208, end: 20220208
  15. ALIMTA [Suspect]
     Active Substance: PEMETREXED DISODIUM
     Route: 041
     Dates: start: 20220228, end: 20220228
  16. ALIMTA [Suspect]
     Active Substance: PEMETREXED DISODIUM
     Route: 041
     Dates: start: 20211215, end: 20211215
  17. ANAMORELIN HYDROCHLORIDE [Suspect]
     Active Substance: ANAMORELIN HYDROCHLORIDE
     Indication: Cachexia
     Dosage: 100 MILLIGRAM, QD
     Route: 048
     Dates: start: 20210813, end: 20220425
  18. ANAMORELIN HYDROCHLORIDE [Suspect]
     Active Substance: ANAMORELIN HYDROCHLORIDE
     Dates: start: 20220517, end: 20220525
  19. FOSAPREPITANT [Suspect]
     Active Substance: FOSAPREPITANT
     Indication: Prophylaxis of nausea and vomiting
     Dosage: 150 MG
     Route: 041
     Dates: start: 20210824, end: 20220118
  20. BILASTINE [Concomitant]
     Active Substance: BILASTINE
     Indication: Product used for unknown indication
     Dosage: 20 MG, EVERYDAY
     Route: 048
  21. BILASTINE [Concomitant]
     Active Substance: BILASTINE
     Dosage: 20 MILLIGRAM, QD
     Route: 048
  22. PANTETHINE [Concomitant]
     Active Substance: PANTETHINE
     Indication: Product used for unknown indication
     Dosage: 300 MG, EVERYDAY
     Route: 048
  23. PANTETHINE [Concomitant]
     Active Substance: PANTETHINE
     Dosage: 300 MILLIGRAM, QD
     Route: 048
  24. MAGNESIUM OXIDE [Concomitant]
     Active Substance: MAGNESIUM OXIDE
     Indication: Product used for unknown indication
     Dosage: 750 MG, EVERYDAY
     Route: 048
  25. MAGNESIUM OXIDE [Concomitant]
     Active Substance: MAGNESIUM OXIDE
     Dosage: 750 MILLIGRAM, QD
     Route: 048
  26. LOCOID [Concomitant]
     Active Substance: HYDROCORTISONE BUTYRATE
     Indication: Product used for unknown indication
     Dosage: APPROPRIATE DOSAGE, EVERYDAY
     Route: 061
  27. LOCOID [Concomitant]
     Active Substance: HYDROCORTISONE BUTYRATE
     Dosage: APPROPRIATE DOSAGE, EVERYDAY
     Route: 061
  28. KYTRIL [Concomitant]
     Active Substance: GRANISETRON HYDROCHLORIDE
     Indication: Prophylaxis
     Dosage: 3 MG, EVERYDAY
     Route: 041
     Dates: start: 20210824, end: 20210824
  29. KYTRIL [Concomitant]
     Active Substance: GRANISETRON HYDROCHLORIDE
     Dosage: 3 MG, EVERYDAY
     Route: 041
     Dates: start: 20211215, end: 20211215
  30. KYTRIL [Concomitant]
     Active Substance: GRANISETRON HYDROCHLORIDE
     Dosage: 3 MG, EVERYDAY
     Route: 041
     Dates: start: 20220118, end: 20220118
  31. DEXAMETHASONE SODIUM PHOSPHATE [Concomitant]
     Active Substance: DEXAMETHASONE SODIUM PHOSPHATE
     Indication: Prophylaxis
     Dosage: 4.95 MG, EVERYDAY
     Dates: start: 20210824, end: 20210824
  32. DEXAMETHASONE SODIUM PHOSPHATE [Concomitant]
     Active Substance: DEXAMETHASONE SODIUM PHOSPHATE
     Dosage: 4.95 MG, EVERYDAY
     Dates: start: 20211215, end: 20211215
  33. DEXAMETHASONE SODIUM PHOSPHATE [Concomitant]
     Active Substance: DEXAMETHASONE SODIUM PHOSPHATE
     Dosage: 4.95 MG, EVERYDAY
     Dates: start: 20220118, end: 20220118
  34. DEXAMETHASONE SODIUM PHOSPHATE [Concomitant]
     Active Substance: DEXAMETHASONE SODIUM PHOSPHATE
     Dosage: 4.95 MG, EVERYDAY
     Dates: start: 20220208, end: 20220208
  35. DEXAMETHASONE SODIUM PHOSPHATE [Concomitant]
     Active Substance: DEXAMETHASONE SODIUM PHOSPHATE
     Dosage: 4.95 MG, EVERYDAY
     Dates: start: 20220228, end: 20220228
  36. DEXAMETHASONE SODIUM PHOSPHATE [Concomitant]
     Active Substance: DEXAMETHASONE SODIUM PHOSPHATE
     Dosage: 4.95 MG, EVERYDAY
     Dates: start: 20220405, end: 20220405
  37. PANVITAN[ASCORBIC ACID;CALCIUM PANTOTHENATE;CYANOCOBALAMIN;ERGOCALCIFE [Concomitant]
     Indication: Product used for unknown indication
     Dosage: 1 GRAM, QD
     Route: 048
     Dates: end: 20210915
  38. PANVITAN[ASCORBIC ACID;CALCIUM PANTOTHENATE;CYANOCOBALAMIN;ERGOCALCIFE [Concomitant]
     Dosage: 1 GRAM, QD
     Route: 048
     Dates: start: 20211208, end: 20220413
  39. DOCETAXEL [Concomitant]
     Active Substance: DOCETAXEL
     Indication: Non-small cell lung cancer recurrent
     Dates: start: 20220405, end: 20220405
  40. NOVAMIN [AMIKACIN SULFATE] [Concomitant]
     Route: 030
     Dates: start: 20211220, end: 20211223
  41. NOVAMIN [AMIKACIN SULFATE] [Concomitant]
     Route: 030
     Dates: start: 20211224, end: 20220105
  42. NOVAMIN [AMIKACIN SULFATE] [Concomitant]
     Route: 030
     Dates: start: 20220422, end: 20220428
  43. NOVAMIN [AMIKACIN SULFATE] [Concomitant]
     Route: 030
     Dates: start: 20220423, end: 20220423
  44. PRIMPERAN [Concomitant]
     Active Substance: METOCLOPRAMIDE HYDROCHLORIDE
     Route: 030
     Dates: start: 20220423, end: 20220427
  45. PRIMPERAN [Concomitant]
     Active Substance: METOCLOPRAMIDE HYDROCHLORIDE
     Route: 030
     Dates: start: 20211222, end: 20211226
  46. PEGFILGRASTIM [Concomitant]
     Active Substance: PEGFILGRASTIM
     Dates: start: 20220120, end: 20220120
  47. FRESMIN S [HYDROXOCOBALAMIN] [Concomitant]
     Dosage: 1000 ?G, EVERYDAY
     Dates: start: 20220215, end: 20220215
  48. FRESMIN S [HYDROXOCOBALAMIN] [Concomitant]
     Dosage: 1000 ?G, EVERYDAY
     Dates: start: 20211213, end: 20211213
  49. CARBOCYSTEINE [Concomitant]
     Active Substance: CARBOCYSTEINE
     Dosage: 1000 ?G, EVERYDAY
     Dates: start: 20211213, end: 20211213
  50. CARBOCYSTEINE [Concomitant]
     Active Substance: CARBOCYSTEINE
     Dosage: 1000 ?G, EVERYDAY
     Dates: start: 20220215, end: 20220215
  51. PENTAZOCINE [Concomitant]
     Active Substance: PENTAZOCINE
     Indication: Endoscopy
     Dosage: 1000 ?G, EVERYDAY
     Dates: start: 20220506, end: 20220506
  52. MIDAZOLAM [MIDAZOLAM MALEATE] [Concomitant]
     Indication: Oesophageal prosthesis insertion
     Dosage: 1000 ?G, EVERYDAY
     Dates: start: 20220506, end: 20220506
  53. FLUMAZENIL/KABI [Concomitant]
     Indication: Oesophageal prosthesis insertion
     Dosage: 1000 ?G, EVERYDAY
     Dates: start: 20220502, end: 20220502

REACTIONS (20)
  - Hypokalaemia [Recovering/Resolving]
  - Hypopituitarism [Recovering/Resolving]
  - Febrile neutropenia [Recovered/Resolved]
  - Oesophageal stenosis [Recovering/Resolving]
  - Pneumonia [Recovered/Resolved]
  - Neutrophil count decreased [Recovered/Resolved]
  - Abdominal discomfort [Recovered/Resolved]
  - Diarrhoea [Recovering/Resolving]
  - Colitis [Recovering/Resolving]
  - Tongue coated [Recovered/Resolved]
  - Skin disorder [Recovering/Resolving]
  - Anaemia [Recovering/Resolving]
  - Pyrexia [Recovered/Resolved]
  - Headache [Recovered/Resolved]
  - Abdominal pain upper [Recovered/Resolved]
  - Arthralgia [Recovering/Resolving]
  - Back pain [Recovering/Resolving]
  - Stomatitis [Recovered/Resolved]
  - Decreased appetite [Recovering/Resolving]
  - Nausea [Not Recovered/Not Resolved]

NARRATIVE: CASE EVENT DATE: 20210815
